FAERS Safety Report 4307118-2 (Version None)
Quarter: 2004Q1

REPORT INFORMATION
  Report Type: 
  Country: None (occurrence: None)
  Receive Date: 20040226
  Receipt Date: 20040226
  Transmission Date: 20041129
  Serious: Yes (Other)
  Sender: FDA-Public Use
  Company Number: None

PATIENT
  Age: 52 Year
  Sex: Female
  Weight: 79.3795 kg

DRUGS (1)
  1. BOTOX COSMETIC [Suspect]
     Indication: SKIN WRINKLING
     Dates: start: 20040205

REACTIONS (12)
  - ERYTHEMA [None]
  - EYE OEDEMA [None]
  - EYELID OEDEMA [None]
  - FATIGUE [None]
  - HEADACHE [None]
  - HORDEOLUM [None]
  - PAIN [None]
  - PRURITUS [None]
  - SKIN DESQUAMATION [None]
  - SKIN WARM [None]
  - SWELLING FACE [None]
  - VISUAL DISTURBANCE [None]
